FAERS Safety Report 12303003 (Version 1)
Quarter: 2016Q2

REPORT INFORMATION
  Report Type: Spontaneous
  Country: US (occurrence: US)
  Receive Date: 20160426
  Receipt Date: 20160426
  Transmission Date: 20160815
  Serious: No
  Sender: FDA-Public Use
  Company Number: US-ASTRAZENECA-2016SE28292

PATIENT
  Age: 77 Year
  Sex: Female
  Weight: 50.3 kg

DRUGS (2)
  1. LYNPARZA [Suspect]
     Active Substance: OLAPARIB
     Indication: OVARIAN CANCER
     Dosage: 800 MG, 16 PILLS DAILY
     Route: 048
  2. LYNPARZA [Suspect]
     Active Substance: OLAPARIB
     Indication: OVARIAN CANCER
     Dosage: UNKNOWN, 12 PILLS DAILY, 6 IN THE MORNING AND 6 PILLS
     Route: 048

REACTIONS (6)
  - Vomiting [Unknown]
  - Weight decreased [Unknown]
  - Adverse drug reaction [Unknown]
  - Intentional product misuse [Unknown]
  - Body height decreased [Unknown]
  - Nausea [Unknown]

NARRATIVE: CASE EVENT DATE: 2016
